FAERS Safety Report 10035741 (Version 2)
Quarter: 2014Q1

REPORT INFORMATION
  Report Type: Spontaneous
  Country: IT (occurrence: IT)
  Receive Date: 20140325
  Receipt Date: 20140325
  Transmission Date: 20141002
  Serious: Yes (Hospitalization)
  Sender: FDA-Public Use
  Company Number: PHHY2013IT141828

PATIENT
  Age: 54 Year
  Sex: Female

DRUGS (7)
  1. TEGRETOL [Suspect]
     Indication: BIPOLAR DISORDER
     Dosage: 800 MG PER DAY
     Route: 048
     Dates: start: 20110501, end: 20131118
  2. SPORANOX [Interacting]
     Indication: FUNGAL INFECTION
     Dosage: 200 MG PER DAY
     Route: 048
     Dates: start: 20131113, end: 20131115
  3. CARBOLITHIUM [Interacting]
     Indication: BIPOLAR DISORDER
     Dosage: 900 MG PER DAY
     Route: 048
     Dates: start: 19950101, end: 20131118
  4. TACHIPIRINA [Concomitant]
     Indication: PYREXIA
     Dosage: 2000 MG PER DAY
     Route: 048
     Dates: start: 20131113, end: 20131115
  5. PROZINE [Concomitant]
     Dosage: UNK UKN, UNK
     Dates: start: 20130801, end: 20131118
  6. SERENASE [Concomitant]
     Dosage: 15 DRP, UNK
     Dates: start: 20130801, end: 20131118
  7. VALIUM [Concomitant]
     Dosage: 8 DRP, UNK
     Dates: start: 20121101, end: 20131118

REACTIONS (6)
  - Drug level increased [Recovered/Resolved]
  - Drug interaction [Recovered/Resolved]
  - Toxicity to various agents [Recovered/Resolved]
  - Confusional state [Recovered/Resolved]
  - Headache [Recovered/Resolved]
  - Urinary retention [Recovered/Resolved]
